FAERS Safety Report 16059228 (Version 2)
Quarter: 2019Q1

REPORT INFORMATION
  Report Type: Spontaneous
  Country: ES (occurrence: ES)
  Receive Date: 20190311
  Receipt Date: 20190312
  Transmission Date: 20190418
  Serious: Yes (Life-Threatening, Hospitalization, Disabling)
  Sender: FDA-Public Use
  Company Number: ES-ASTRAZENECA-2019SE37467

PATIENT
  Age: 73 Year
  Sex: Female

DRUGS (8)
  1. CAFINITRINA [Concomitant]
     Indication: ACUTE MYOCARDIAL INFARCTION
     Dosage: ONLY IF THORACIC PAIN. SHE CAN TAKE UNTIL 3 TABLETS SEPARATE OF 15 MINUTES
     Dates: start: 201811
  2. ADIRO [Concomitant]
     Active Substance: ASPIRIN
     Indication: ACUTE MYOCARDIAL INFARCTION
     Route: 048
     Dates: start: 201811
  3. ORFIDAL [Concomitant]
     Active Substance: LORAZEPAM
     Route: 048
  4. EMCONCOR COR [Concomitant]
     Active Substance: BISOPROLOL
     Indication: ACUTE MYOCARDIAL INFARCTION
     Route: 048
     Dates: start: 201811
  5. BRILIQUE [Suspect]
     Active Substance: TICAGRELOR
     Indication: ACUTE MYOCARDIAL INFARCTION
     Route: 048
     Dates: start: 201811, end: 201901
  6. CARDYL [Interacting]
     Active Substance: ATORVASTATIN CALCIUM
     Indication: ACUTE MYOCARDIAL INFARCTION
     Route: 048
     Dates: start: 201811, end: 201901
  7. OMEPRAZOLE. [Concomitant]
     Active Substance: OMEPRAZOLE
     Route: 048
  8. RAMIPRIL. [Concomitant]
     Active Substance: RAMIPRIL
     Indication: ACUTE MYOCARDIAL INFARCTION
     Route: 048
     Dates: start: 201811

REACTIONS (3)
  - Acute kidney injury [Recovering/Resolving]
  - Rhabdomyolysis [Recovering/Resolving]
  - Myopathy [Recovering/Resolving]

NARRATIVE: CASE EVENT DATE: 201812
